FAERS Safety Report 6970383-7 (Version None)
Quarter: 2010Q3

REPORT INFORMATION
  Report Type: 
  Country: None (occurrence: None)
  Receive Date: 20100908
  Receipt Date: 20100614
  Transmission Date: 20110219
  Serious: Yes (Hospitalization)
  Sender: FDA-Public Use
  Company Number: BE-BAXTER-2010BH009562

PATIENT
  Age: 70 Year
  Sex: Male

DRUGS (26)
  1. FEIBA [Suspect]
     Indication: HAEMORRHAGE
     Route: 042
     Dates: start: 20100301, end: 20100326
  2. FEIBA [Suspect]
     Indication: HAEMOPHILIA
     Route: 042
     Dates: start: 20100301, end: 20100326
  3. FEIBA [Suspect]
     Indication: FACTOR VIII INHIBITION
     Route: 042
     Dates: start: 20100301, end: 20100326
  4. FEIBA [Suspect]
     Route: 042
     Dates: start: 20100301, end: 20100326
  5. FEIBA [Suspect]
     Route: 042
     Dates: start: 20100301, end: 20100326
  6. FEIBA [Suspect]
     Route: 042
     Dates: start: 20100301, end: 20100326
  7. FEIBA [Suspect]
     Route: 042
     Dates: start: 20100301, end: 20100326
  8. FEIBA [Suspect]
     Route: 042
     Dates: start: 20100301, end: 20100326
  9. FEIBA [Suspect]
     Route: 042
     Dates: start: 20100301, end: 20100326
  10. FEIBA [Suspect]
     Route: 042
     Dates: start: 20090201, end: 20100228
  11. FEIBA [Suspect]
     Route: 042
     Dates: start: 20090201, end: 20100228
  12. FEIBA [Suspect]
     Route: 042
     Dates: start: 20090201, end: 20100228
  13. VANCOMYCIN HCL [Concomitant]
     Route: 042
  14. ALPRAZOLAM [Concomitant]
     Route: 048
  15. ACETAMINOPHEN [Concomitant]
     Route: 048
  16. DIOVANE [Concomitant]
     Route: 048
  17. FUROSEMIDE [Concomitant]
     Route: 048
  18. GLUCOPHAGE [Concomitant]
     Route: 048
  19. SERLAIN [Concomitant]
     Route: 048
  20. HEXTRIL [Concomitant]
  21. DAKTOZIN [Concomitant]
  22. SODIUM CA METHYLPOLYGALACTURONATE SULFONATE [Concomitant]
     Indication: HAEMATOMA
  23. ISOBETADINE [Concomitant]
     Route: 061
  24. SODIUM CHLORIDE 0.9% [Concomitant]
  25. PARIET [Concomitant]
     Route: 048
  26. AMARYL [Concomitant]
     Route: 048

REACTIONS (3)
  - CEREBROVASCULAR ACCIDENT [None]
  - EPILEPSY [None]
  - PNEUMONIA [None]
